FAERS Safety Report 8824709 (Version 1)
Quarter: 2012Q4

REPORT INFORMATION
  Report Type: Report from Study
  Country: US (occurrence: US)
  Receive Date: 20121004
  Receipt Date: 20121004
  Transmission Date: 20130627
  Serious: Yes (Other)
  Sender: FDA-Public Use
  Company Number: US-ABBOTT-12P-163-0986397-00

PATIENT
  Age: 47 Year
  Sex: Female

DRUGS (14)
  1. HUMIRA [Suspect]
     Indication: PSORIATIC ARTHROPATHY
     Dates: start: 2010
  2. AZULFIDINE [Concomitant]
     Indication: ARTHRITIS
     Dosage: 300mg daily
  3. TRAMADOL [Concomitant]
     Indication: PAIN
     Dosage: 400 mg every day
  4. OTC ALLERGY PILL [Concomitant]
     Indication: PRODUCT USED FOR UNKNOWN INDICATION
     Dosage: Every day
  5. SINGULAIR [Concomitant]
     Indication: ASTHMA
     Dosage: Every day
  6. SINGULAIR [Concomitant]
     Indication: HYPERSENSITIVITY
  7. ADVAIR UNSPEC [Concomitant]
     Indication: ASTHMA
     Dosage: 250/50 twice daily (During allergy season)
  8. PROAIR [Concomitant]
     Indication: ASTHMA
  9. CLOBETASOL [Concomitant]
     Indication: PSORIASIS
     Dosage: Every day
  10. CLONIDINE [Concomitant]
     Indication: NIGHT SWEATS
     Dosage: EVERY PM
  11. CLONIDINE [Concomitant]
     Indication: HOT FLUSH
  12. CLONAZEPAM [Concomitant]
     Indication: EMOTIONAL DISTRESS
     Dosage: EVERY PM
  13. VIBRYD [Concomitant]
     Indication: DEPRESSION
     Dosage: EVERY PM
  14. VERAPAMIL [Concomitant]
     Indication: MIGRAINE PROPHYLAXIS

REACTIONS (6)
  - Fall [Recovering/Resolving]
  - Upper limb fracture [Recovering/Resolving]
  - Depression [Unknown]
  - Night sweats [Unknown]
  - Menopausal symptoms [Unknown]
  - Emotional distress [Unknown]
